FAERS Safety Report 15256031 (Version 1)
Quarter: 2018Q3

REPORT INFORMATION
  Report Type: Spontaneous
  Country: US (occurrence: US)
  Receive Date: 20180718
  Receipt Date: 20180718
  Transmission Date: 20181010
  Serious: Yes (Hospitalization, Other)
  Sender: FDA-Public Use
  Company Number: None

PATIENT
  Age: 73 Year
  Sex: Male
  Weight: 68.2 kg

DRUGS (1)
  1. YESCARTA [Suspect]
     Active Substance: AXICABTAGENE CILOLEUCEL
     Indication: DIFFUSE LARGE B-CELL LYMPHOMA
     Route: 041
     Dates: start: 20180604, end: 20180604

REACTIONS (11)
  - Presyncope [None]
  - Refusal of treatment by patient [None]
  - Disturbance in attention [None]
  - Neurotoxicity [None]
  - Gastrointestinal pain [None]
  - Intestinal perforation [None]
  - Asthenia [None]
  - Disorientation [None]
  - Apnoea [None]
  - Oxygen saturation decreased [None]
  - Aphasia [None]

NARRATIVE: CASE EVENT DATE: 20180604
